FAERS Safety Report 13121229 (Version 3)
Quarter: 2017Q1

REPORT INFORMATION
  Report Type: Other
  Country: US (occurrence: US)
  Receive Date: 20170117
  Receipt Date: 20170212
  Transmission Date: 20170428
  Serious: Yes (Hospitalization)
  Sender: FDA-Public Use
  Company Number: US-ACORDA-ACO_132404_2017

PATIENT
  Sex: Female

DRUGS (2)
  1. ANTIBIOTICS [Suspect]
     Active Substance: UNSPECIFIED INGREDIENT
     Indication: NEUROGENIC BLADDER
     Dosage: UNK
     Route: 065
  2. AMPYRA [Suspect]
     Active Substance: DALFAMPRIDINE
     Indication: MULTIPLE SCLEROSIS
     Dosage: 10 MG, BID
     Route: 048

REACTIONS (7)
  - Cystitis [Unknown]
  - Peroneal nerve palsy [Recovered/Resolved]
  - Drug dose omission [Recovered/Resolved]
  - Drug hypersensitivity [Unknown]
  - Cystitis [Unknown]
  - Incontinence [Unknown]
  - Incontinence [Unknown]

NARRATIVE: CASE EVENT DATE: 2015
